FAERS Safety Report 8529974-4 (Version None)
Quarter: 2012Q3

REPORT INFORMATION
  Report Type: 
  Country: None (occurrence: None)
  Receive Date: 20120723
  Receipt Date: 20120716
  Transmission Date: 20120928
  Serious: Yes (Hospitalization, Other)
  Sender: FDA-Public Use
  Company Number: PHHY2011CA86491

PATIENT
  Sex: Male

DRUGS (2)
  1. EXJADE [Suspect]
     Indication: MYELODYSPLASTIC SYNDROME
     Dosage: 1500 MG, UNK
     Route: 048
     Dates: start: 20090820
  2. EXJADE [Suspect]
     Dosage: 500 MG PER DAY
     Route: 048

REACTIONS (9)
  - HAEMOGLOBIN DECREASED [None]
  - AMNESIA [None]
  - CHEST PAIN [None]
  - TOOTHACHE [None]
  - NEUTROPENIA [None]
  - NASOPHARYNGITIS [None]
  - DYSPHONIA [None]
  - PNEUMONIA [None]
  - DENTAL CARIES [None]
